FAERS Safety Report 23863472 (Version 1)
Quarter: 2024Q2

REPORT INFORMATION
  Report Type: Spontaneous
  Country: US (occurrence: US)
  Receive Date: 20240516
  Receipt Date: 20240516
  Transmission Date: 20240716
  Serious: No
  Sender: FDA-Public Use
  Company Number: US-BAYER-2024A068454

PATIENT
  Sex: Female

DRUGS (1)
  1. ASTEPRO [Suspect]
     Active Substance: AZELASTINE HYDROCHLORIDE
     Dosage: TWO SPRAYS IN EACH NOSTRIL

REACTIONS (3)
  - Drug ineffective [Unknown]
  - Rhinorrhoea [Unknown]
  - Sneezing [Unknown]
